FAERS Safety Report 22203379 (Version 1)
Quarter: 2023Q2

REPORT INFORMATION
  Report Type: Spontaneous
  Country: US (occurrence: None)
  Receive Date: 20230412
  Receipt Date: 20230412
  Transmission Date: 20230722
  Serious: Yes (Disabling, Other)
  Sender: FDA-Public Use
  Company Number: None

PATIENT
  Age: 69 Year
  Sex: Female
  Weight: 63.5 kg

DRUGS (7)
  1. RECLAST [Suspect]
     Active Substance: ZOLEDRONIC ACID
     Indication: Osteoporosis prophylaxis
     Dates: start: 20230324, end: 20230324
  2. SEMAGLUTIDE [Concomitant]
     Active Substance: SEMAGLUTIDE
  3. HYZAAR [Concomitant]
     Active Substance: HYDROCHLOROTHIAZIDE\LOSARTAN POTASSIUM
  4. PROTONIX [Concomitant]
     Active Substance: PANTOPRAZOLE SODIUM
  5. VITAMIN B12 [Concomitant]
     Active Substance: CYANOCOBALAMIN
  6. CALCIUM [Concomitant]
     Active Substance: CALCIUM
  7. VITAMIN D [Concomitant]
     Active Substance: VITAMIN D NOS

REACTIONS (16)
  - Bone pain [None]
  - Myalgia [None]
  - Loss of personal independence in daily activities [None]
  - Spinal pain [None]
  - Arthralgia [None]
  - Arthralgia [None]
  - Arthralgia [None]
  - Pain in jaw [None]
  - C-reactive protein increased [None]
  - Blood alkaline phosphatase increased [None]
  - Red blood cell sedimentation rate increased [None]
  - Autoimmune arthritis [None]
  - Vasculitis [None]
  - Infusion related reaction [None]
  - Temporomandibular joint syndrome [None]
  - Impaired driving ability [None]

NARRATIVE: CASE EVENT DATE: 20230324
